FAERS Safety Report 11804037 (Version 1)
Quarter: 2015Q4

REPORT INFORMATION
  Report Type: Report from Study
  Country: US (occurrence: US)
  Receive Date: 20151204
  Receipt Date: 20151204
  Transmission Date: 20160305
  Serious: Yes (Congenital Anomaly, Other)
  Sender: FDA-Public Use
  Company Number: US-JNJFOC-20151200319

PATIENT
  Age: 0 Day
  Weight: 2.06 kg

DRUGS (21)
  1. ESTRADIOL. [Suspect]
     Active Substance: ESTRADIOL
     Indication: IN VITRO FERTILISATION
     Route: 064
     Dates: start: 20150116, end: 20150410
  2. PREDNISONE. [Suspect]
     Active Substance: PREDNISONE
     Indication: CROHN^S DISEASE
     Route: 064
     Dates: start: 20150109, end: 20150408
  3. PREDNISONE. [Suspect]
     Active Substance: PREDNISONE
     Indication: CROHN^S DISEASE
     Route: 064
     Dates: start: 20150508, end: 20150522
  4. BIOTIN [Concomitant]
     Active Substance: BIOTIN
     Route: 064
     Dates: start: 20150109, end: 20150913
  5. PREDNISONE. [Suspect]
     Active Substance: PREDNISONE
     Indication: CROHN^S DISEASE
     Route: 064
     Dates: start: 20150802, end: 20150913
  6. TUMS [Suspect]
     Active Substance: CALCIUM CARBONATE
     Indication: DYSPEPSIA
     Route: 064
     Dates: start: 20150430, end: 20150903
  7. CALCIUM [Concomitant]
     Active Substance: CALCIUM
     Route: 064
     Dates: start: 20150109, end: 20150913
  8. STELARA [Suspect]
     Active Substance: USTEKINUMAB
     Indication: CROHN^S DISEASE
     Route: 064
     Dates: start: 20130215, end: 20150701
  9. CRINONE [Suspect]
     Active Substance: PROGESTERONE
     Indication: IN VITRO FERTILISATION
     Route: 064
  10. PREDNISONE. [Suspect]
     Active Substance: PREDNISONE
     Indication: CROHN^S DISEASE
     Route: 064
     Dates: start: 20150430, end: 20150507
  11. PREDNISONE. [Suspect]
     Active Substance: PREDNISONE
     Indication: CROHN^S DISEASE
     Route: 064
     Dates: start: 20150423, end: 20150429
  12. PREDNISONE. [Suspect]
     Active Substance: PREDNISONE
     Indication: CROHN^S DISEASE
     Route: 064
     Dates: start: 20150531, end: 20150801
  13. PREDNISONE. [Suspect]
     Active Substance: PREDNISONE
     Indication: CROHN^S DISEASE
     Route: 064
     Dates: start: 20150523, end: 20150530
  14. VITAMIN D [Concomitant]
     Active Substance: CHOLECALCIFEROL
     Route: 064
     Dates: start: 20150109, end: 20150913
  15. TYLENOL [Suspect]
     Active Substance: ACETAMINOPHEN
     Indication: HEADACHE
     Route: 064
     Dates: start: 20150109, end: 20150420
  16. PREDNISONE. [Suspect]
     Active Substance: PREDNISONE
     Indication: CROHN^S DISEASE
     Route: 064
     Dates: start: 20150409, end: 20150415
  17. ESTRADIOL. [Suspect]
     Active Substance: ESTRADIOL
     Indication: IN VITRO FERTILISATION
     Route: 064
     Dates: start: 20150116, end: 20150410
  18. TYLENOL [Suspect]
     Active Substance: ACETAMINOPHEN
     Indication: HEADACHE
     Route: 064
     Dates: start: 20150430, end: 20150903
  19. PREDNISONE. [Suspect]
     Active Substance: PREDNISONE
     Indication: CROHN^S DISEASE
     Route: 064
     Dates: start: 20150416, end: 20150422
  20. PROGESTERONE. [Suspect]
     Active Substance: PROGESTERONE
     Indication: IN VITRO FERTILISATION
     Route: 064
  21. FOLIC ACID. [Concomitant]
     Active Substance: FOLIC ACID
     Route: 064
     Dates: start: 20150109, end: 20150913

REACTIONS (5)
  - Atrial septal defect [Unknown]
  - Maternal drugs affecting foetus [None]
  - Premature baby [Not Recovered/Not Resolved]
  - Ventricular septal defect [Unknown]
  - Foetal exposure during pregnancy [Recovered/Resolved]

NARRATIVE: CASE EVENT DATE: 20150913
